FAERS Safety Report 8889925 (Version 3)
Quarter: 2012Q4

REPORT INFORMATION
  Report Type: 
  Country: US (occurrence: US)
  Receive Date: 20121107
  Receipt Date: 20121130
  Transmission Date: 20130627
  Serious: No
  Sender: FDA-Public Use
  Company Number: US-CELGENEUS-163-21880-12103789

PATIENT
  Age: 66 None
  Sex: Male

DRUGS (2)
  1. REVLIMID [Suspect]
     Indication: MULTIPLE MYELOMA
     Dosage: 7.5 Milligram
     Route: 048
     Dates: start: 20121019, end: 201211
  2. REVLIMID [Suspect]
     Indication: UNSPECIFIED DISORDER OF PLASMA PROTEIN METABOLISM

REACTIONS (5)
  - Hyperglycaemia [Recovered/Resolved]
  - Dyspnoea [Not Recovered/Not Resolved]
  - Dehydration [Recovered/Resolved]
  - Drug intolerance [Unknown]
  - General physical health deterioration [Unknown]
